FAERS Safety Report 23625585 (Version 2)
Quarter: 2024Q1

REPORT INFORMATION
  Report Type: Spontaneous
  Country: AU (occurrence: AU)
  Receive Date: 20240313
  Receipt Date: 20240325
  Transmission Date: 20240409
  Serious: Yes (Hospitalization)
  Sender: FDA-Public Use
  Company Number: AU-BAXTER-2024BAX014300

PATIENT

DRUGS (2)
  1. SODIUM CHLORIDE [Suspect]
     Active Substance: SODIUM CHLORIDE
     Indication: Medication dilution
     Dosage: UNK
     Route: 065
  2. FLUOROURACIL [Suspect]
     Active Substance: FLUOROURACIL
     Dosage: 4632 MG AT AN UNSPECIFIED FREQUENCY
     Route: 065

REACTIONS (3)
  - Gastrointestinal toxicity [Unknown]
  - Diarrhoea [Unknown]
  - Incorrect drug administration rate [Unknown]
